FAERS Safety Report 21688655 (Version 2)
Quarter: 2022Q4

REPORT INFORMATION
  Report Type: Spontaneous
  Country: US (occurrence: US)
  Receive Date: 20221206
  Receipt Date: 20221216
  Transmission Date: 20230112
  Serious: No
  Sender: FDA-Public Use
  Company Number: US-PFIZER INC-202201348826

PATIENT
  Age: 47 Year
  Sex: Female

DRUGS (1)
  1. XELJANZ XR [Suspect]
     Active Substance: TOFACITINIB CITRATE
     Dosage: 11 MG
     Dates: start: 202211, end: 2022

REACTIONS (4)
  - Nasopharyngitis [Unknown]
  - Sinus disorder [Unknown]
  - Hypersensitivity [Unknown]
  - Illness [Unknown]

NARRATIVE: CASE EVENT DATE: 20220101
